FAERS Safety Report 4404129-3 (Version None)
Quarter: 2004Q3

REPORT INFORMATION
  Report Type: 
  Country: None (occurrence: None)
  Receive Date: 20040721
  Receipt Date: 20040721
  Transmission Date: 20050211
  Serious: No
  Sender: FDA-Public Use
  Company Number: None

PATIENT
  Sex: Male
  Weight: 97.977 kg

DRUGS (6)
  1. DESMOPRESSIN ACETATE [Suspect]
     Indication: ENURESIS
     Dosage: 0.2 MG Q HS ORAL
     Route: 048
     Dates: start: 20030729, end: 20040514
  2. CHLORPROMAZINE [Concomitant]
  3. RISPERIDONE [Concomitant]
  4. DIVALPROEX SODIUM [Concomitant]
  5. GABAPENTIN [Concomitant]
  6. OXYBUTYNIN [Concomitant]

REACTIONS (5)
  - BLOOD POTASSIUM INCREASED [None]
  - HYPONATRAEMIA [None]
  - PITTING OEDEMA [None]
  - POLYDIPSIA [None]
  - WEIGHT INCREASED [None]
